FAERS Safety Report 10645340 (Version 2)
Quarter: 2014Q4

REPORT INFORMATION
  Report Type: Spontaneous
  Country: US (occurrence: None)
  Receive Date: 20141209
  Receipt Date: 20141212
  Transmission Date: 20150529
  Serious: Yes (Life-Threatening, Hospitalization)
  Sender: FDA-Public Use
  Company Number: BD-2014-0147

PATIENT
  Age: 31 Year
  Sex: Female

DRUGS (2)
  1. IBUPROFEN. [Suspect]
     Active Substance: IBUPROFEN
     Indication: PRODUCT USED FOR UNKNOWN INDICATION
  2. DIPHENHYDRAMINE [Suspect]
     Active Substance: DIPHENHYDRAMINE
     Indication: PRODUCT USED FOR UNKNOWN INDICATION

REACTIONS (10)
  - Stress cardiomyopathy [None]
  - Ventricular tachycardia [None]
  - Cardiac arrest [None]
  - Sinus tachycardia [None]
  - Pulseless electrical activity [None]
  - Mental status changes [None]
  - Overdose [None]
  - Cardiogenic shock [None]
  - Myocardial oedema [None]
  - Pulmonary oedema [None]
